FAERS Safety Report 12956469 (Version 3)
Quarter: 2022Q1

REPORT INFORMATION
  Report Type: Report from Study
  Country: CA (occurrence: CA)
  Receive Date: 20161118
  Receipt Date: 20220307
  Transmission Date: 20220423
  Serious: Yes (Other)
  Sender: FDA-Public Use
  Company Number: CA-JNJFOC-20161111262

PATIENT
  Age: 17 Year
  Sex: Male
  Weight: 63.6 kg

DRUGS (5)
  1. REMICADE [Suspect]
     Active Substance: INFLIXIMAB
     Indication: Crohn^s disease
     Route: 042
     Dates: start: 20160121
  2. REMICADE [Suspect]
     Active Substance: INFLIXIMAB
     Route: 042
     Dates: start: 20160406
  3. REMICADE [Suspect]
     Active Substance: INFLIXIMAB
     Route: 042
     Dates: start: 20161109
  4. REMICADE [Suspect]
     Active Substance: INFLIXIMAB
     Route: 042
  5. METHOTREXATE [Concomitant]
     Active Substance: METHOTREXATE
     Route: 048

REACTIONS (6)
  - Corneal defect [Recovering/Resolving]
  - Crohn^s disease [Unknown]
  - Lacrimation increased [Unknown]
  - Drug ineffective [Not Recovered/Not Resolved]
  - Scleral discolouration [Unknown]
  - Vision blurred [Unknown]

NARRATIVE: CASE EVENT DATE: 20161027
